FAERS Safety Report 25291001 (Version 2)
Quarter: 2025Q2

REPORT INFORMATION
  Report Type: Spontaneous
  Country: US (occurrence: US)
  Receive Date: 20250510
  Receipt Date: 20250518
  Transmission Date: 20250716
  Serious: No
  Sender: SANOFI AVENTIS
  Company Number: US-SA-2025SA120421

PATIENT
  Age: 59 Year
  Sex: Female

DRUGS (1)
  1. DUPIXENT [Suspect]
     Active Substance: DUPILUMAB
     Indication: Dermatitis atopic
     Dosage: 300 MG, QOW
     Route: 058
     Dates: start: 20250317, end: 20250414

REACTIONS (10)
  - Visual impairment [Unknown]
  - Vision blurred [Unknown]
  - Arthritis [Unknown]
  - Pain in extremity [Unknown]
  - Grip strength decreased [Unknown]
  - Anxiety [Unknown]
  - Headache [Unknown]
  - Arthralgia [Unknown]
  - Injection site pain [Unknown]
  - Rash [Recovered/Resolved]

NARRATIVE: CASE EVENT DATE: 20250101
